FAERS Safety Report 4977105-X (Version None)
Quarter: 2006Q1

REPORT INFORMATION
  Report Type: 
  Country: None (occurrence: None)
  Receive Date: 20060223
  Receipt Date: 20050712
  Transmission Date: 20060701
  Serious: Yes (Disabling)
  Sender: FDA-Public Use
  Company Number: 032-16

PATIENT
  Age: 65 Year
  Sex: Female

DRUGS (12)
  1. TEVETEN [Suspect]
     Indication: HYPERTENSION
     Dosage: 600 MG QD PO
     Route: 048
     Dates: start: 20050623, end: 20050709
  2. INDERAL [Concomitant]
  3. DONNATAL [Concomitant]
  4. NAPROXEN [Concomitant]
  5. CLARINEX [Concomitant]
  6. NEXIUM [Concomitant]
  7. ZOLOFT [Concomitant]
  8. HYDROCHLOROTHIAZIDE [Concomitant]
  9. MULTIVTIAMIN [Concomitant]
  10. ECOTRIN [Concomitant]
  11. CALCIUM GLUCONATE [Concomitant]
  12. MAGNESIUM [Concomitant]

REACTIONS (3)
  - FALL [None]
  - INTERVERTEBRAL DISC PROTRUSION [None]
  - RHABDOMYOLYSIS [None]
